FAERS Safety Report 5099405-8 (Version None)
Quarter: 2006Q3

REPORT INFORMATION
  Report Type: 
  Country: None (occurrence: None)
  Receive Date: 20060906
  Receipt Date: 20060824
  Transmission Date: 20061208
  Serious: Yes (Other)
  Sender: FDA-Public Use
  Company Number: 2006102698

PATIENT
  Age: 58 Year
  Sex: Female
  Weight: 52.1637 kg

DRUGS (14)
  1. CHANTIX [Suspect]
     Indication: EX-SMOKER
     Dosage: 0.5 MG (0.5 MG, 1 IN 1 D)
     Dates: start: 20060801
  2. SEREVENT [Concomitant]
  3. PULMICORT [Concomitant]
  4. MONTELUKAST (MONTELUKAST) [Concomitant]
  5. SPIRIVA [Concomitant]
  6. ALBUTEROL [Concomitant]
  7. VALIUM [Concomitant]
  8. TRAZODONE HCL [Concomitant]
  9. HYDROXYZINE [Concomitant]
  10. RHINOCORT [Concomitant]
  11. UNIPHY (THEOPHYLLINE) [Concomitant]
  12. FENTANYL [Concomitant]
  13. VICODIN [Concomitant]
  14. QUININE SULFATE [Concomitant]

REACTIONS (10)
  - ABNORMAL DREAMS [None]
  - COUGH [None]
  - DECREASED APPETITE [None]
  - DISEASE RECURRENCE [None]
  - DISORIENTATION [None]
  - DIZZINESS [None]
  - DYSPNOEA [None]
  - DYSSOMNIA [None]
  - GLAUCOMA [None]
  - WEIGHT DECREASED [None]
